FAERS Safety Report 5467055-7 (Version None)
Quarter: 2007Q3

REPORT INFORMATION
  Report Type: 
  Country: None (occurrence: None)
  Receive Date: 20070925
  Receipt Date: 20070918
  Transmission Date: 20080115
  Serious: Yes (Hospitalization)
  Sender: FDA-Public Use
  Company Number: B0488444A

PATIENT
  Age: 53 Year
  Sex: Male
  Weight: 170 kg

DRUGS (9)
  1. ROSIGLITAZONE [Suspect]
     Route: 048
     Dates: end: 20070821
  2. AMLODIPINE [Concomitant]
     Dosage: 10MG PER DAY
  3. CARVEDILOL [Concomitant]
     Dosage: 3.125MG PER DAY
  4. DOXAZOSIN MESYLATE [Concomitant]
     Dosage: 4MG TWICE PER DAY
  5. FUROSEMIDE [Concomitant]
     Dosage: 40MG PER DAY
  6. INDAPAMIDE [Concomitant]
     Dosage: 1.5MG PER DAY
  7. METFORMIN HCL [Concomitant]
     Dosage: 1G TWICE PER DAY
  8. ORLISTAT [Concomitant]
     Dosage: 120MG THREE TIMES PER DAY
  9. RAMIPRIL [Concomitant]
     Dosage: 10MG TWICE PER DAY

REACTIONS (5)
  - CARDIAC FAILURE CONGESTIVE [None]
  - CARDIOMEGALY [None]
  - DYSPNOEA [None]
  - OEDEMA PERIPHERAL [None]
  - OXYGEN SATURATION DECREASED [None]
